FAERS Safety Report 8876601 (Version 2)
Quarter: 2013Q2

REPORT INFORMATION
  Report Type: Spontaneous
  Country: US (occurrence: None)
  Receive Date: 20120426
  Receipt Date: 20120703
  Transmission Date: 20140414
  Serious: Yes (Other)
  Sender: FDA-Public Use
  Company Number: PHEH2012US003880

PATIENT
  Age: 42 Year
  Sex: Male

DRUGS (4)
  1. GILENYA [Suspect]
     Indication: MULTIPLE SCLEROSIS
     Route: 048
     Dates: start: 20120203
  2. RITALIN (METHYLPHENIDATE HYDROCHLORIDE) [Concomitant]
  3. FAMPRIDINE (FAMPRIDINE) [Concomitant]
  4. AMITRIPTYLINE (AMITRIPTYLINE) [Concomitant]

REACTIONS (1)
  - Hypoaesthesia [None]
